FAERS Safety Report 5574896-4 (Version None)
Quarter: 2007Q4

REPORT INFORMATION
  Report Type: 
  Country: None (occurrence: None)
  Receive Date: 20071227
  Receipt Date: 20071217
  Transmission Date: 20080405
  Serious: Yes (Other)
  Sender: FDA-Public Use
  Company Number: US-PFIZER INC-2007106372

PATIENT
  Sex: Male
  Weight: 108.9 kg

DRUGS (3)
  1. LIPITOR [Suspect]
     Indication: BLOOD CHOLESTEROL INCREASED
     Route: 048
  2. ZETIA [Interacting]
  3. METFORMIN/PIOGLITAZONE [Concomitant]

REACTIONS (7)
  - BLOOD CHOLESTEROL ABNORMAL [None]
  - CHOLELITHIASIS [None]
  - DRUG INTERACTION [None]
  - GALLBLADDER DISORDER [None]
  - GALLBLADDER NON-FUNCTIONING [None]
  - GASTROINTESTINAL DISORDER [None]
  - PAIN [None]
